FAERS Safety Report 5139247-8 (Version None)
Quarter: 2006Q4

REPORT INFORMATION
  Report Type: 
  Country: None (occurrence: None)
  Receive Date: 20061030
  Receipt Date: 20061019
  Transmission Date: 20070319
  Serious: Yes (Other)
  Sender: FDA-Public Use
  Company Number: JP-JNJFOC-20060600991

PATIENT
  Sex: Male
  Weight: 2.95 kg

DRUGS (5)
  1. RISPERDAL [Suspect]
     Route: 015
  2. RISPERDAL [Suspect]
     Route: 015
  3. RISPERDAL [Suspect]
     Indication: DRUG EXPOSURE DURING PREGNANCY
     Route: 015
  4. HALOMONTH [Suspect]
     Route: 015
  5. HALOMONTH [Suspect]
     Indication: DRUG EXPOSURE DURING PREGNANCY
     Route: 015

REACTIONS (3)
  - APNOEIC ATTACK [None]
  - DRUG WITHDRAWAL SYNDROME NEONATAL [None]
  - FEEDING DISORDER NEONATAL [None]
